FAERS Safety Report 4781579-7 (Version None)
Quarter: 2005Q3

REPORT INFORMATION
  Report Type: 
  Country: None (occurrence: None)
  Receive Date: 20050927
  Receipt Date: 20050920
  Transmission Date: 20060218
  Serious: Yes (Death)
  Sender: FDA-Public Use
  Company Number: GBWYE991820SEP05

PATIENT
  Age: 56 Year
  Sex: Female

DRUGS (4)
  1. EFFEXOR [Suspect]
     Indication: DEPRESSION
     Dosage: 75 MG DAILY; ORAL
     Route: 048
     Dates: start: 20041124
  2. ASPIRIN [Concomitant]
  3. GAVISON (SODIUM ALGINATE/SODIUM BICARBONATE) [Concomitant]
  4. ALBUTEROL SULFATE HFA [Concomitant]

REACTIONS (1)
  - SUDDEN DEATH [None]
